FAERS Safety Report 5909141-0 (Version None)
Quarter: 2008Q4

REPORT INFORMATION
  Report Type: 
  Country: None (occurrence: None)
  Receive Date: 20081001
  Receipt Date: 20080918
  Transmission Date: 20090506
  Serious: Yes (Hospitalization)
  Sender: FDA-Public Use
  Company Number: MSTR-NO-0809S-0071

PATIENT
  Age: 65 Year
  Sex: Male

DRUGS (1)
  1. METASTRON [Suspect]
     Indication: METASTATIC PAIN
     Dosage: 141 MBQ, SINGLE DOSE, I.V.
     Route: 042
     Dates: start: 20080828, end: 20080828

REACTIONS (1)
  - BONE PAIN [None]
